FAERS Safety Report 24668649 (Version 2)
Quarter: 2025Q1

REPORT INFORMATION
  Report Type: Spontaneous
  Country: US (occurrence: US)
  Receive Date: 20241127
  Receipt Date: 20250120
  Transmission Date: 20250409
  Serious: Yes (Life-Threatening, Hospitalization, Other)
  Sender: AUROBINDO
  Company Number: US-MLMSERVICE-20241106-PI250814-00072-1

PATIENT
  Age: 71 Year
  Sex: Female

DRUGS (6)
  1. BUPIVACAINE HYDROCHLORIDE [Suspect]
     Active Substance: BUPIVACAINE HYDROCHLORIDE
     Indication: Local anaesthesia
     Route: 065
  2. PHENYLEPHRINE [Suspect]
     Active Substance: PHENYLEPHRINE
     Indication: Hypotension
     Route: 065
  3. EPHEDRINE [Suspect]
     Active Substance: EPHEDRINE
     Indication: Hypotension
     Route: 065
  4. PROPOFOL [Suspect]
     Active Substance: PROPOFOL
     Indication: Anaesthesia
     Route: 065
  5. INTRALIPID [Suspect]
     Active Substance: EGG PHOSPHOLIPIDS\GLYCERIN\SOYBEAN OIL
     Indication: Local anaesthetic systemic toxicity
     Route: 065
  6. INTRALIPID [Suspect]
     Active Substance: EGG PHOSPHOLIPIDS\GLYCERIN\SOYBEAN OIL
     Route: 065

REACTIONS (4)
  - Local anaesthetic systemic toxicity [Recovered/Resolved]
  - Pancreatitis necrotising [Recovered/Resolved]
  - Hypertriglyceridaemia [Recovered/Resolved]
  - Drug ineffective [Unknown]
